FAERS Safety Report 9173214 (Version 2)
Quarter: 2013Q2

REPORT INFORMATION
  Report Type: Spontaneous
  Country: DK (occurrence: DK)
  Receive Date: 20130320
  Receipt Date: 20130403
  Transmission Date: 20140414
  Serious: Yes (Hospitalization)
  Sender: FDA-Public Use
  Company Number: DK-JNJFOC-20130304423

PATIENT
  Age: 31 Year
  Sex: Female

DRUGS (4)
  1. REMICADE [Suspect]
     Indication: ARTHRITIS
     Route: 042
  2. METHOTREXAAT [Suspect]
     Indication: ARTHRITIS
     Route: 065
  3. PREDNISOLON [Concomitant]
     Route: 065
  4. CIPRAMIL [Concomitant]
     Route: 065

REACTIONS (2)
  - Biopsy liver [Recovered/Resolved]
  - Hepatic enzyme increased [Recovered/Resolved]
